FAERS Safety Report 15030667 (Version 1)
Quarter: 2018Q2

REPORT INFORMATION
  Report Type: Spontaneous
  Country: NL (occurrence: NL)
  Receive Date: 20180619
  Receipt Date: 20180619
  Transmission Date: 20180711
  Serious: Yes (Other)
  Sender: FDA-Public Use
  Company Number: NL-TEVA-2018-NL-910043

PATIENT
  Age: 75 Year
  Sex: Female
  Weight: 100 kg

DRUGS (6)
  1. ACENOCOUMAROL [Concomitant]
     Active Substance: ACENOCOUMAROL
     Route: 065
  2. AMLODIPINE [Suspect]
     Active Substance: AMLODIPINE BESYLATE
     Indication: HYPERTENSION
     Dosage: 5 MILLIGRAM DAILY;
     Dates: start: 20180305, end: 20180423
  3. AMIODARON [Concomitant]
     Active Substance: AMIODARONE
     Dosage: 200 MG HALF TABLET
     Route: 065
  4. PANTOPRAZOL [Concomitant]
     Active Substance: PANTOPRAZOLE SODIUM
     Dosage: 40 MILLIGRAM DAILY;
  5. PERIDOPRIL [Concomitant]
     Route: 065
  6. BISOPAROL [Concomitant]
     Route: 065
     Dates: end: 20180323

REACTIONS (8)
  - Nausea [Unknown]
  - Pruritus [Unknown]
  - Syncope [Unknown]
  - Glaucoma [Unknown]
  - Gingival swelling [Unknown]
  - Flushing [Unknown]
  - Chest pain [Unknown]
  - Dizziness [Unknown]

NARRATIVE: CASE EVENT DATE: 20180305
